FAERS Safety Report 5478158-5 (Version None)
Quarter: 2007Q4

REPORT INFORMATION
  Report Type: 
  Country: None (occurrence: None)
  Receive Date: 20071005
  Receipt Date: 20070130
  Transmission Date: 20080405
  Serious: No
  Sender: FDA-Public Use
  Company Number: US-BRISTOL-MYERS SQUIBB COMPANY-13662960

PATIENT
  Age: 69 Year
  Sex: Female

DRUGS (2)
  1. AVAPRO [Suspect]
  2. ATENOLOL [Suspect]

REACTIONS (2)
  - INSOMNIA [None]
  - PALPITATIONS [None]
